FAERS Safety Report 9344167 (Version 6)
Quarter: 2014Q1

REPORT INFORMATION
  Report Type: Spontaneous
  Country: JP (occurrence: JP)
  Receive Date: 20130612
  Receipt Date: 20140224
  Transmission Date: 20141002
  Serious: Yes (Hospitalization)
  Sender: FDA-Public Use
  Company Number: JP-NOVOPROD-380071

PATIENT
  Age: 11 Year
  Sex: Male
  Weight: 22 kg

DRUGS (4)
  1. NORDITROPIN FLEXPROCHU 6.7 MG/ML [Suspect]
     Indication: NOONAN SYNDROME
     Dosage: 3 MG, QW
     Route: 058
     Dates: start: 20101021
  2. NORDITROPIN FLEXPROCHU 6.7 MG/ML [Suspect]
     Dosage: 3.6 MG, QW
     Route: 058
     Dates: start: 201012
  3. NORDITROPIN FLEXPROCHU 6.7 MG/ML [Suspect]
     Dosage: 4.2 MG, QW
     Route: 058
     Dates: start: 201110, end: 20120909
  4. NORDITROPIN FLEXPROCHU 6.7 MG/ML [Suspect]
     Dosage: 4.2 MG, QW(0.7MG /DAY, 6 TIMES A WEEK(4.2MG/WEEK).
     Route: 058
     Dates: start: 201304, end: 20130704

REACTIONS (3)
  - Protein-losing gastroenteropathy [Recovered/Resolved]
  - Condition aggravated [Recovered/Resolved]
  - Protein-losing gastroenteropathy [Recovering/Resolving]
